FAERS Safety Report 14579091 (Version 1)
Quarter: 2018Q1

REPORT INFORMATION
  Report Type: Spontaneous
  Country: US (occurrence: US)
  Receive Date: 20180227
  Receipt Date: 20180227
  Transmission Date: 20180509
  Serious: Yes (Other)
  Sender: FDA-Public Use
  Company Number: US-BAYER-2018-032673

PATIENT
  Sex: Female

DRUGS (1)
  1. STIVARGA [Suspect]
     Active Substance: REGORAFENIB
     Indication: PRODUCT USED FOR UNKNOWN INDICATION
     Dosage: UNK
     Dates: start: 20180125, end: 20180208

REACTIONS (6)
  - Rash erythematous [Recovering/Resolving]
  - Lethargy [None]
  - Vaginal haemorrhage [None]
  - Pyrexia [None]
  - Pharyngeal ulceration [None]
  - Mouth ulceration [None]

NARRATIVE: CASE EVENT DATE: 201802
